FAERS Safety Report 12520739 (Version 1)
Quarter: 2016Q3

REPORT INFORMATION
  Report Type: Spontaneous
  Country: CH (occurrence: CH)
  Receive Date: 20160701
  Receipt Date: 20160701
  Transmission Date: 20161109
  Serious: Yes (Other)
  Sender: FDA-Public Use
  Company Number: CH-BAYER-2016-124275

PATIENT
  Sex: Male

DRUGS (4)
  1. XOFIGO [Suspect]
     Active Substance: RADIUM RA-223 DICHLORIDE
     Indication: METASTASES TO BONE
  2. ABIRATERONE [Concomitant]
     Active Substance: ABIRATERONE
     Indication: PROSTATE CANCER METASTATIC
     Dosage: UNK
     Dates: start: 20141121
  3. XOFIGO [Suspect]
     Active Substance: RADIUM RA-223 DICHLORIDE
     Indication: PROSTATE CANCER METASTATIC
     Dosage: UNK
     Dates: start: 201401, end: 201406
  4. ABIRATERONE [Concomitant]
     Active Substance: ABIRATERONE
     Indication: METASTASES TO BONE

REACTIONS (3)
  - Metastases to bone [Unknown]
  - Prostatic specific antigen increased [None]
  - Metastases to lymph nodes [Unknown]

NARRATIVE: CASE EVENT DATE: 201401
